FAERS Safety Report 16885431 (Version 4)
Quarter: 2019Q4

REPORT INFORMATION
  Report Type: Spontaneous
  Country: BR (occurrence: BR)
  Receive Date: 20191004
  Receipt Date: 20191226
  Transmission Date: 20200122
  Serious: Yes (Hospitalization)
  Sender: FDA-Public Use
  Company Number: BR-CELGENEUS-BRA-20190909277

PATIENT
  Age: 70 Year
  Sex: Male
  Weight: 59.9 kg

DRUGS (35)
  1. DIMENHYDRINATE/PYRIDOXINE HCL [Concomitant]
     Indication: TREMOR
     Dosage: 50+10 MG
     Route: 048
     Dates: start: 20190828, end: 20190902
  2. DIMENHYDRINATE/PYRIDOXINE HCL [Concomitant]
     Indication: NAUSEA
  3. OMEPRAZOLE. [Concomitant]
     Active Substance: OMEPRAZOLE
     Indication: DYSPNOEA
  4. DIMENHYDRINATE/PYRIDOXINE HCL [Concomitant]
     Indication: DYSPNOEA
     Dosage: 3+5 MG/ML
     Route: 041
     Dates: start: 20190909, end: 20190916
  5. BENADRYL [Concomitant]
     Active Substance: DIPHENHYDRAMINE HYDROCHLORIDE
     Indication: PRODUCT USED FOR UNKNOWN INDICATION
     Dosage: 50MG/1ML
     Route: 040
     Dates: start: 20190916, end: 20190916
  6. METAMIZOLE SODIUM [Concomitant]
     Active Substance: METAMIZOLE SODIUM
     Indication: DYSPNOEA
     Route: 065
     Dates: end: 20190916
  7. GLIBENCLAMIDE [Concomitant]
     Active Substance: GLYBURIDE
     Indication: DIABETES MELLITUS
     Dosage: 5 MILLIGRAM
     Route: 061
     Dates: start: 2014
  8. DIMENHYDRINATE. [Concomitant]
     Active Substance: DIMENHYDRINATE
     Indication: VOMITING
  9. SULFAMETHOXAZOLE/TRIMETHOPRIM [Concomitant]
     Active Substance: SULFAMETHOXAZOLE\TRIMETHOPRIM
     Indication: TREMOR
     Dosage: 160 MILLIGRAM
     Route: 048
     Dates: start: 20190910, end: 20190910
  10. ACYCLOVIR. [Concomitant]
     Active Substance: ACYCLOVIR
     Indication: HERPES VIRUS INFECTION
     Dosage: 800 MILLIGRAM
     Route: 048
     Dates: start: 20190728
  11. METAMIZOLE SODIUM [Concomitant]
     Active Substance: METAMIZOLE SODIUM
     Indication: TREMOR
     Dosage: 500MG/2ML
     Route: 041
     Dates: start: 20190909, end: 20190910
  12. ACYCLOVIR. [Concomitant]
     Active Substance: ACYCLOVIR
     Indication: DYSPNOEA
  13. BROMOPRIDE [Concomitant]
     Active Substance: BROMOPRIDE
     Indication: TRANSFUSION REACTION
  14. GLUCOSE [Concomitant]
     Active Substance: DEXTROSE
     Indication: TREMOR
     Dosage: 50 PERCENT
     Route: 041
     Dates: start: 20190909, end: 20190909
  15. AZACITIDINE. [Suspect]
     Active Substance: AZACITIDINE
     Indication: ACUTE MYELOID LEUKAEMIA
     Dosage: 75 MILLIGRAM/SQ. METER
     Route: 058
     Dates: start: 20190826, end: 20190903
  16. OMEPRAZOLE. [Concomitant]
     Active Substance: OMEPRAZOLE
     Indication: DYSPEPSIA
     Dosage: 20 MILLIGRAM
     Route: 048
     Dates: start: 2016
  17. SULFAMETHOXAZOLE/TRIMETHOPRIM [Concomitant]
     Active Substance: SULFAMETHOXAZOLE\TRIMETHOPRIM
     Indication: DYSPNOEA
  18. BROMOPRIDE [Concomitant]
     Active Substance: BROMOPRIDE
     Indication: NAUSEA
     Route: 065
     Dates: start: 20190826, end: 20190903
  19. PRACINOSTAT [Concomitant]
     Active Substance: PRACINOSTAT
     Indication: ACUTE MYELOID LEUKAEMIA
     Dosage: 60 MILLIGRAM
     Route: 048
     Dates: start: 20190826, end: 20190913
  20. OMEPRAZOLE. [Concomitant]
     Active Substance: OMEPRAZOLE
     Indication: TREMOR
     Dosage: 20 MILLIGRAM
     Route: 065
     Dates: start: 20190910, end: 20190910
  21. ACYCLOVIR. [Concomitant]
     Active Substance: ACYCLOVIR
     Indication: TREMOR
     Dosage: 400 MILLIGRAM
     Route: 048
     Dates: start: 20190910, end: 20190910
  22. GLUCOSE [Concomitant]
     Active Substance: DEXTROSE
     Indication: DYSPNOEA
     Dosage: 50 MILLILITER
     Route: 040
  23. METAMIZOLE SODIUM [Concomitant]
     Active Substance: METAMIZOLE SODIUM
     Indication: ALLERGY PROPHYLAXIS
  24. METAMIZOLE SODIUM [Concomitant]
     Active Substance: METAMIZOLE SODIUM
     Indication: PAIN PROPHYLAXIS
  25. METFORMIN [Concomitant]
     Active Substance: METFORMIN HYDROCHLORIDE
     Indication: DIABETES MELLITUS
     Dosage: 1700 MILLIGRAM
     Route: 048
     Dates: start: 2014
  26. OMEPRAZOLE. [Concomitant]
     Active Substance: OMEPRAZOLE
     Indication: TRANSFUSION REACTION
  27. HYDROCORTISONE. [Concomitant]
     Active Substance: HYDROCORTISONE
     Indication: PRODUCT USED FOR UNKNOWN INDICATION
     Dosage: 500 MILLIGRAM
     Route: 040
     Dates: start: 20190909, end: 20190916
  28. TRIMETHOPRIM. [Concomitant]
     Active Substance: TRIMETHOPRIM
     Indication: PNEUMOCYSTIS JIROVECII PNEUMONIA
     Dosage: 80 MILLIGRAM
     Route: 048
     Dates: start: 20190731
  29. DIPHENHYDRAMINE. [Concomitant]
     Active Substance: DIPHENHYDRAMINE
     Indication: PROPHYLAXIS
     Dosage: 50MG/1ML
     Route: 041
     Dates: start: 20190916, end: 20190916
  30. DIMENHYDRINATE. [Concomitant]
     Active Substance: DIMENHYDRINATE
     Indication: NAUSEA
     Dosage: 1 AMPOULE BEFORE AZACITIDINE
     Route: 041
     Dates: start: 20190827, end: 20190903
  31. DIMENHYDRINATE/PYRIDOXINE HCL [Concomitant]
     Indication: PROPHYLAXIS
  32. BROMOPRIDE [Concomitant]
     Active Substance: BROMOPRIDE
     Indication: VOMITING
     Dosage: 30 MILLIGRAM
     Route: 048
     Dates: start: 20190828, end: 20191002
  33. BROMOPRIDE [Concomitant]
     Active Substance: BROMOPRIDE
     Indication: TREMOR
     Dosage: 10 MILLIGRAM/2 ML
     Route: 040
     Dates: start: 20190910, end: 20190910
  34. BROMOPRIDE [Concomitant]
     Active Substance: BROMOPRIDE
     Indication: DYSPNOEA
  35. SULFAMETAZOLE [Concomitant]
     Indication: PNEUMOCYSTIS JIROVECII PNEUMONIA
     Dosage: 400 MILLIGRAM
     Route: 048
     Dates: start: 20190731

REACTIONS (1)
  - Skin lesion [Recovered/Resolved]

NARRATIVE: CASE EVENT DATE: 20190916
